FAERS Safety Report 11380589 (Version 1)
Quarter: 2015Q3

REPORT INFORMATION
  Report Type: Spontaneous
  Country: US (occurrence: US)
  Receive Date: 20150814
  Receipt Date: 20150814
  Transmission Date: 20151125
  Serious: No
  Sender: FDA-Public Use
  Company Number: US-JNJFOC-20150600922

PATIENT
  Sex: Female

DRUGS (1)
  1. PANCREAZE [Suspect]
     Active Substance: PANCRELIPASE
     Indication: PRODUCT USED FOR UNKNOWN INDICATION
     Dosage: 2 CAPSULES/ CAPSULES/4,200-10,000-17,500/ THREE TIMES DAILY/PO - ORAL
     Route: 048
     Dates: start: 2014

REACTIONS (1)
  - Drug dispensing error [Unknown]
